FAERS Safety Report 5398077-2 (Version None)
Quarter: 2007Q3

REPORT INFORMATION
  Report Type: 
  Country: None (occurrence: None)
  Receive Date: 20070726
  Receipt Date: 20070720
  Transmission Date: 20080115
  Serious: Yes (Life-Threatening, Hospitalization)
  Sender: FDA-Public Use
  Company Number: GBWYE780604JUN07

PATIENT
  Sex: Female

DRUGS (12)
  1. EFFEXOR XR [Suspect]
     Indication: DEPRESSION
     Dosage: 75MG, FREQUENCY UNKNOWN
     Route: 048
     Dates: start: 20050511, end: 20050513
  2. NEOCLARITYN [Concomitant]
     Dosage: 5MG, FREQUENCY UNKNOWN
     Route: 048
     Dates: start: 20041101
  3. DIDRONEL [Concomitant]
     Indication: OSTEOARTHRITIS
     Dosage: AS NEEDED
     Route: 048
     Dates: start: 19980101, end: 20060101
  4. ACETAMINOPHEN W/ CODEINE [Concomitant]
     Indication: OSTEOPOROSIS
     Dosage: AS NEEDED
     Route: 048
     Dates: start: 20041201
  5. TERIPARATIDE [Concomitant]
     Indication: OSTEOARTHRITIS
     Dosage: UNKNOWN
     Dates: start: 20060101
  6. ASPIRIN [Concomitant]
     Route: 048
     Dates: start: 19990101
  7. DETRUSITOL [Concomitant]
     Indication: BLADDER DISORDER
     Route: 048
     Dates: start: 20040801
  8. NIFEDIPINE [Concomitant]
     Route: 048
     Dates: start: 19990101
  9. OMEPRAZOLE [Concomitant]
     Indication: GASTROINTESTINAL DISORDER
     Route: 048
     Dates: start: 20020501
  10. DIAZEPAM [Concomitant]
     Indication: ANXIETY
     Dosage: 5MG, AS NEEDED
     Route: 048
  11. ETHANOL [Interacting]
     Dosage: UNKNOWN
  12. CENTYL [Concomitant]
     Route: 048
     Dates: start: 20031201

REACTIONS (5)
  - ALCOHOL INTERACTION [None]
  - BLOOD POTASSIUM DECREASED [None]
  - GRAND MAL CONVULSION [None]
  - INAPPROPRIATE ANTIDIURETIC HORMONE SECRETION [None]
  - UNRESPONSIVE TO STIMULI [None]
